FAERS Safety Report 19284892 (Version 3)
Quarter: 2021Q3

REPORT INFORMATION
  Report Type: Report from Study
  Country: CA (occurrence: CA)
  Receive Date: 20210521
  Receipt Date: 20210705
  Transmission Date: 20211014
  Serious: Yes (Hospitalization, Other)
  Sender: FDA-Public Use
  Company Number: CA-TAKEDA-2021TUS031168

PATIENT
  Age: 73 Year
  Sex: Male

DRUGS (5)
  1. SALOFALK [Concomitant]
     Dosage: 1000 MILLIGRAM, QD
     Dates: start: 20201001
  2. CORTISONE [Concomitant]
     Active Substance: CORTISONE
     Dosage: UNK
     Dates: start: 20201109, end: 20210108
  3. PREDNISONE. [Concomitant]
     Active Substance: PREDNISONE
     Dosage: UNK
     Dates: start: 20201109
  4. VEDOLIZUMAB [Suspect]
     Active Substance: VEDOLIZUMAB
     Indication: CROHN^S DISEASE
     Dosage: 300 MILLIGRAM
     Route: 042
     Dates: start: 20201207
  5. CORTISONE [Concomitant]
     Active Substance: CORTISONE
     Dosage: UNK
     Dates: start: 20200110, end: 20200309

REACTIONS (2)
  - Phlebitis [Recovered/Resolved]
  - Thrombosis [Not Recovered/Not Resolved]
